APPROVED DRUG PRODUCT: ISOSORBIDE MONONITRATE
Active Ingredient: ISOSORBIDE MONONITRATE
Strength: 30MG
Dosage Form/Route: TABLET, EXTENDED RELEASE;ORAL
Application: A075522 | Product #002 | TE Code: AB
Applicant: DEXCEL LTD
Approved: Sep 20, 2016 | RLD: No | RS: No | Type: RX